FAERS Safety Report 7385796-1 (Version None)
Quarter: 2011Q1

REPORT INFORMATION
  Report Type: 
  Country: None (occurrence: None)
  Receive Date: 20110331
  Receipt Date: 20110318
  Transmission Date: 20110831
  Serious: Yes (Hospitalization)
  Sender: FDA-Public Use
  Company Number: IT-RANBAXY-2011RR-42766

PATIENT
  Age: 11 Month
  Sex: Male
  Weight: 10 kg

DRUGS (3)
  1. CLARITHROMYCIN [Concomitant]
     Indication: UPPER RESPIRATORY TRACT INFECTION
     Dosage: 15 MG/KG, UNK
  2. PARACETAMOL [Suspect]
     Dosage: 12.5 MG/KG, QID
     Route: 054
  3. PARACETAMOL [Suspect]
     Indication: PYREXIA
     Dosage: 12 MG/KG, Q4H
     Route: 048

REACTIONS (4)
  - HEPATIC NECROSIS [None]
  - VOMITING [None]
  - HEPATITIS FULMINANT [None]
  - LIVER INJURY [None]
